FAERS Safety Report 8558887-7 (Version None)
Quarter: 2012Q3

REPORT INFORMATION
  Report Type: 
  Country: None (occurrence: None)
  Receive Date: 20120801
  Receipt Date: 20120726
  Transmission Date: 20120928
  Serious: Yes (Death)
  Sender: FDA-Public Use
  Company Number: CHPA2012US016441

PATIENT
  Age: 81 Year
  Sex: Male

DRUGS (1)
  1. BENEFIBER W/ WHEAT DEXTRIN [Suspect]
     Indication: GASTROINTESTINAL DISORDER
     Dosage: UNK, UNK
     Route: 048

REACTIONS (3)
  - DEATH [None]
  - THERAPEUTIC RESPONSE UNEXPECTED [None]
  - OFF LABEL USE [None]
